FAERS Safety Report 4700355-4 (Version None)
Quarter: 2005Q2

REPORT INFORMATION
  Report Type: 
  Country: None (occurrence: None)
  Receive Date: 20050627
  Receipt Date: 20050527
  Transmission Date: 20051028
  Serious: Yes (Other)
  Sender: FDA-Public Use
  Company Number: PHRM2005FR01706

PATIENT
  Age: 69 Year
  Sex: Female

DRUGS (4)
  1. LESCOL [Suspect]
     Indication: HYPERCHOLESTEROLAEMIA
     Dosage: 80 MG, QD
     Route: 048
     Dates: start: 20041217, end: 20050329
  2. SELOKEN [Concomitant]
     Dosage: 100 MG, QD
     Route: 048
     Dates: start: 19990101
  3. FIXICAL D3 [Concomitant]
     Dosage: 2 DF/DAY
     Route: 048
  4. VEINOBIASE [Concomitant]
     Route: 048

REACTIONS (7)
  - ALANINE AMINOTRANSFERASE INCREASED [None]
  - ANOREXIA [None]
  - ASPARTATE AMINOTRANSFERASE INCREASED [None]
  - CHOLESTASIS [None]
  - CYTOLYTIC HEPATITIS [None]
  - GAMMA-GLUTAMYLTRANSFERASE INCREASED [None]
  - HAEMANGIOMA OF LIVER [None]
